FAERS Safety Report 21733025 (Version 1)
Quarter: 2022Q4

REPORT INFORMATION
  Report Type: Spontaneous
  Country: JP (occurrence: JP)
  Receive Date: 20221215
  Receipt Date: 20221215
  Transmission Date: 20230112
  Serious: No
  Sender: FDA-Public Use
  Company Number: JP-ELI_LILLY_AND_COMPANY-JP202207000143

PATIENT
  Sex: Male

DRUGS (1)
  1. DULOXETINE HYDROCHLORIDE [Suspect]
     Active Substance: DULOXETINE HYDROCHLORIDE
     Indication: Back pain
     Dosage: 60 MG, DAILY
     Route: 048
     Dates: end: 202210

REACTIONS (7)
  - Conjunctival haemorrhage [Unknown]
  - Liver function test increased [Unknown]
  - Blood lactate dehydrogenase increased [Unknown]
  - Hyperhidrosis [Unknown]
  - Weight increased [Unknown]
  - Blood pressure increased [Unknown]
  - Malaise [Unknown]
